FAERS Safety Report 15974699 (Version 1)
Quarter: 2019Q1

REPORT INFORMATION
  Report Type: Spontaneous
  Country: GB (occurrence: GB)
  Receive Date: 20190218
  Receipt Date: 20190218
  Transmission Date: 20190418
  Serious: Yes (Other)
  Sender: FDA-Public Use
  Company Number: GB-UCBSA-2019005479

PATIENT
  Age: 25 Year
  Sex: Female

DRUGS (1)
  1. KEPPRA [Suspect]
     Active Substance: LEVETIRACETAM
     Indication: PRODUCT USED FOR UNKNOWN INDICATION
     Dosage: 1250 MG, 2X/DAY (BID)
     Dates: start: 201612, end: 201704

REACTIONS (4)
  - Brain neoplasm [Unknown]
  - Tonic convulsion [Recovered/Resolved]
  - Tearfulness [Unknown]
  - Irritability [Unknown]

NARRATIVE: CASE EVENT DATE: 201702
